FAERS Safety Report 25477637 (Version 1)
Quarter: 2025Q2

REPORT INFORMATION
  Report Type: Spontaneous
  Country: JP (occurrence: JP)
  Receive Date: 20250625
  Receipt Date: 20250625
  Transmission Date: 20250716
  Serious: Yes (Death, Other)
  Sender: ROCHE
  Company Number: JP-CHUGAI-2025019737

PATIENT
  Age: 85 Year
  Sex: Male

DRUGS (1)
  1. TAMIFLU [Suspect]
     Active Substance: OSELTAMIVIR PHOSPHATE
     Indication: Influenza
     Route: 048

REACTIONS (6)
  - Pseudomonal bacteraemia [Fatal]
  - Device related infection [Unknown]
  - Septic shock [Unknown]
  - Anaemia [Unknown]
  - Toxic epidermal necrolysis [Recovering/Resolving]
  - Acute kidney injury [Unknown]
